FAERS Safety Report 4712483-8 (Version None)
Quarter: 2005Q2

REPORT INFORMATION
  Report Type: 
  Country: None (occurrence: None)
  Receive Date: 20050629
  Receipt Date: 20050309
  Transmission Date: 20051028
  Serious: No
  Sender: FDA-Public Use
  Company Number: 05P-163-0293272-00

PATIENT
  Age: 77 Year
  Sex: Female
  Weight: 80.2867 kg

DRUGS (9)
  1. HUMIRA [Suspect]
     Indication: RHEUMATOID ARTHRITIS
     Dosage: 40 MG, 1 IN 1 WK, SUBCUTANEOUS
     Route: 058
     Dates: start: 20040604
  2. AVANDEMET [Concomitant]
  3. RISEDRONATE SODIUM [Concomitant]
  4. CALCIUM GLUCONATE [Concomitant]
  5. ESOMEPRAZOLE [Concomitant]
  6. PREDNISONE [Concomitant]
  7. LISINOPRIL [Concomitant]
  8. ATORVASTATIN CALCIUM [Concomitant]
  9. CLOPIDOGREL BISULFATE [Concomitant]

REACTIONS (3)
  - BLISTER [None]
  - DIABETES MELLITUS NON-INSULIN-DEPENDENT [None]
  - RASH [None]
